FAERS Safety Report 18456178 (Version 6)
Quarter: 2020Q4

REPORT INFORMATION
  Report Type: Report from Study
  Country: CA (occurrence: CA)
  Receive Date: 20201103
  Receipt Date: 20201207
  Transmission Date: 20210114
  Serious: Yes (Other)
  Sender: FDA-Public Use
  Company Number: CA-BIOGEN-2020BI00915798

PATIENT
  Age: 23 Year
  Sex: Female

DRUGS (6)
  1. BENADRYL [Concomitant]
     Active Substance: DIPHENHYDRAMINE HYDROCHLORIDE
     Indication: PREMEDICATION
     Route: 042
  2. TYSABRI [Suspect]
     Active Substance: NATALIZUMAB
     Indication: MULTIPLE SCLEROSIS
     Dosage: INFUSED OVER 1.25 HOUR
     Route: 042
     Dates: start: 20200720
  3. TYSABRI [Suspect]
     Active Substance: NATALIZUMAB
     Dosage: INFUSED AT 100CC/HOUR
     Route: 042
     Dates: start: 20200720
  4. ATIVAN [Concomitant]
     Active Substance: LORAZEPAM
     Indication: STRESS
     Route: 065
  5. TYSABRI [Suspect]
     Active Substance: NATALIZUMAB
     Route: 042
     Dates: start: 20200720, end: 20201125
  6. METHYLPREDNISOLONE. [Concomitant]
     Active Substance: METHYLPREDNISOLONE
     Indication: PREMEDICATION
     Route: 042

REACTIONS (24)
  - Gingivitis [Recovered/Resolved]
  - Throat tightness [Unknown]
  - Lethargy [Unknown]
  - Feeling hot [Recovered/Resolved]
  - Skin tightness [Recovered/Resolved]
  - Emotional distress [Recovered/Resolved]
  - Swelling face [Recovered/Resolved]
  - Chest pain [Recovered/Resolved]
  - Lip swelling [Recovered/Resolved]
  - Dizziness [Recovered/Resolved]
  - Urticaria [Recovered/Resolved]
  - Dyspnoea [Recovered/Resolved]
  - Erythema [Recovered/Resolved]
  - Anaphylactic shock [Not Recovered/Not Resolved]
  - Lip disorder [Recovered/Resolved]
  - Oxygen saturation decreased [Unknown]
  - Pharyngeal swelling [Recovered/Resolved]
  - Hypoaesthesia [Recovered/Resolved]
  - Stress [Not Recovered/Not Resolved]
  - Tooth disorder [Unknown]
  - Flushing [Recovered/Resolved]
  - Pyrexia [Recovered/Resolved]
  - Chest discomfort [Recovered/Resolved]
  - Chills [Recovered/Resolved]

NARRATIVE: CASE EVENT DATE: 20200817
